FAERS Safety Report 15850315 (Version 1)
Quarter: 2019Q1

REPORT INFORMATION
  Report Type: Spontaneous
  Country: US (occurrence: US)
  Receive Date: 20190121
  Receipt Date: 20190121
  Transmission Date: 20190417
  Serious: No
  Sender: FDA-Public Use
  Company Number: US-PFIZER INC-2019020465

PATIENT
  Age: 75 Year
  Sex: Female
  Weight: 68.95 kg

DRUGS (1)
  1. ARGININE HCL [Suspect]
     Active Substance: ARGININE HYDROCHLORIDE
     Indication: ANGIOPATHY
     Dosage: 1000 MG, 3 TIMES A DAY
     Dates: start: 20190109

REACTIONS (4)
  - Dizziness [Recovered/Resolved]
  - Presyncope [Recovered/Resolved]
  - Palpitations [Recovered/Resolved]
  - Product use in unapproved indication [Unknown]

NARRATIVE: CASE EVENT DATE: 20190109
